FAERS Safety Report 16468782 (Version 1)
Quarter: 2019Q2

REPORT INFORMATION
  Report Type: Spontaneous
  Country: US (occurrence: US)
  Receive Date: 20190624
  Receipt Date: 20190624
  Transmission Date: 20190711
  Serious: Yes (Other)
  Sender: FDA-Public Use
  Company Number: US-SA-2019SA162956

PATIENT
  Sex: Male

DRUGS (2)
  1. FLOMAX [Suspect]
     Active Substance: TAMSULOSIN HYDROCHLORIDE
     Dosage: 0.4 MG, TOTAL
     Route: 048
     Dates: start: 20190219, end: 20190429
  2. TRAZODONE HYDROCHLORIDE. [Suspect]
     Active Substance: TRAZODONE HYDROCHLORIDE
     Dosage: 100 MG, TOTAL
     Route: 048
     Dates: start: 20190219, end: 20190429

REACTIONS (4)
  - Type 2 diabetes mellitus [Unknown]
  - Insomnia [Unknown]
  - Essential hypertension [Unknown]
  - Pollakiuria [Unknown]
